FAERS Safety Report 9679052 (Version 1)
Quarter: 2013Q4

REPORT INFORMATION
  Report Type: Spontaneous
  Country: US (occurrence: None)
  Receive Date: 20131107
  Receipt Date: 20131107
  Transmission Date: 20140711
  Serious: Yes (Hospitalization, Other)
  Sender: FDA-Public Use
  Company Number: US-ZYDUS-002386

PATIENT
  Age: 55 Year
  Sex: Male

DRUGS (2)
  1. AMLODIPINE (AMLODIPINE) [Suspect]
  2. LABETOLOL (LABETOLOL) [Suspect]

REACTIONS (4)
  - Hypotension [None]
  - Renal failure acute [None]
  - Overdose [None]
  - Mental status changes [None]
